FAERS Safety Report 11531549 (Version 1)
Quarter: 2015Q3

REPORT INFORMATION
  Report Type: Spontaneous
  Country: US (occurrence: US)
  Receive Date: 20150903
  Receipt Date: 20150903
  Transmission Date: 20151125
  Serious: No
  Sender: FDA-Public Use
  Company Number: US-ELI_LILLY_AND_COMPANY-US201110001603

PATIENT
  Sex: Female

DRUGS (2)
  1. HUMALOG MIX75/25 [Suspect]
     Active Substance: INSULIN LISPRO
     Indication: TYPE 2 DIABETES MELLITUS
     Dosage: UNK
  2. HUMALOG MIX75/25 [Suspect]
     Active Substance: INSULIN LISPRO
     Dosage: UNK UNK, BID

REACTIONS (5)
  - Back injury [Unknown]
  - Gait disturbance [Unknown]
  - Visual impairment [Not Recovered/Not Resolved]
  - Multiple fractures [Unknown]
  - Cataract operation [Unknown]

NARRATIVE: CASE EVENT DATE: 2010
